FAERS Safety Report 9033281 (Version 1)
Quarter: 2013Q1

REPORT INFORMATION
  Report Type: Spontaneous
  Country: PT (occurrence: PT)
  Receive Date: 20130128
  Receipt Date: 20130128
  Transmission Date: 20140127
  Serious: Yes (Other)
  Sender: FDA-Public Use
  Company Number: PT-009507513-1301PRT011892

PATIENT
  Age: 13 Year
  Sex: Female

DRUGS (1)
  1. FOSAMAX 70MG [Suspect]
     Indication: OSTEOGENESIS IMPERFECTA
     Dosage: UNK, QW
     Route: 048
     Dates: start: 201112

REACTIONS (2)
  - Femoral neck fracture [Unknown]
  - Off label use [Unknown]
